FAERS Safety Report 4372739-8 (Version None)
Quarter: 2004Q2

REPORT INFORMATION
  Report Type: 
  Country: None (occurrence: None)
  Receive Date: 20040602
  Receipt Date: 20040419
  Transmission Date: 20050107
  Serious: No
  Sender: FDA-Public Use
  Company Number: 200417654BWH

PATIENT
  Age: 74 Year
  Sex: Male
  Weight: 92.9874 kg

DRUGS (9)
  1. LEVITRA [Suspect]
     Indication: ERECTILE DYSFUNCTION
     Dosage: 10 MG, TOTAL DAILY, ORAL
     Route: 048
     Dates: start: 20040412
  2. LEVITRA [Suspect]
     Indication: ERECTILE DYSFUNCTION
     Dosage: 10 MG, TOTAL DAILY, ORAL
     Route: 048
     Dates: start: 20040419
  3. ASPIRIN [Concomitant]
  4. ZOCOR [Concomitant]
  5. SINGULAIR [Concomitant]
  6. ATROVENT [Concomitant]
  7. DISOPROLOL [Concomitant]
  8. ACIPHEX [Concomitant]
  9. LEVOXYL [Concomitant]

REACTIONS (1)
  - STOMACH DISCOMFORT [None]
